FAERS Safety Report 6033921-7 (Version None)
Quarter: 2009Q1

REPORT INFORMATION
  Report Type: 
  Country: None (occurrence: None)
  Receive Date: 20090112
  Receipt Date: 20090108
  Transmission Date: 20090719
  Serious: Yes (Life-Threatening)
  Sender: FDA-Public Use
  Company Number: JP-BAYER-200810476BYL

PATIENT
  Age: 49 Year
  Sex: Female
  Weight: 48 kg

DRUGS (9)
  1. TRIQUILAR [Suspect]
     Indication: MENORRHAGIA
     Route: 048
     Dates: start: 20050501, end: 20060801
  2. MIRENA [Suspect]
     Indication: DRUG USE FOR UNKNOWN INDICATION
     Dosage: TOTAL DAILY DOSE: 20 ?G  UNIT DOSE: 52 MG
     Route: 015
     Dates: start: 20070601, end: 20080202
  3. TOMIRON [Concomitant]
     Indication: INFECTION PROPHYLAXIS
     Dosage: AS USED: 300 MG  UNIT DOSE: 100 MG
     Route: 048
     Dates: start: 20070601, end: 20070602
  4. FERROMIA [Concomitant]
     Indication: ANAEMIA
     Dosage: AS USED: 100 MG
     Route: 048
     Dates: start: 20070626, end: 20070731
  5. LOXONIN [Concomitant]
     Indication: ABDOMINAL PAIN LOWER
     Route: 048
     Dates: start: 20070626, end: 20071201
  6. FESIN [Concomitant]
     Indication: ANAEMIA
     Dosage: AS USED: 80 MG  UNIT DOSE: 40 MG
     Route: 042
     Dates: start: 20070626, end: 20070721
  7. FESIN [Concomitant]
     Dosage: AS USED: 80 MG  UNIT DOSE: 40 MG
     Route: 048
     Dates: start: 20080112
  8. COLONEL [Concomitant]
     Indication: DIARRHOEA
     Dosage: AS USED: 1000 MG  UNIT DOSE: 500 MG
     Route: 048
     Dates: start: 20070915, end: 20071005
  9. LAC B [Concomitant]
     Indication: DIARRHOEA
     Dosage: AS USED: 3 G
     Route: 048
     Dates: start: 20070915, end: 20071015

REACTIONS (2)
  - METRORRHAGIA [None]
  - UTERINE CANCER [None]
